FAERS Safety Report 5101302-6 (Version None)
Quarter: 2006Q3

REPORT INFORMATION
  Report Type: 
  Country: None (occurrence: None)
  Receive Date: 20060906
  Receipt Date: 20060822
  Transmission Date: 20061208
  Serious: Yes (Death)
  Sender: FDA-Public Use
  Company Number: SPV1-2006-00497

PATIENT
  Age: 33 Year
  Sex: Female
  Weight: 90.2 kg

DRUGS (13)
  1. CARBAMAZEPINE [Suspect]
  2. NITRAZEPAM A (NITRAZEPAM) [Concomitant]
  3. TRIHEXYPHENIDYL   /00002602/ (TRIHEXYPHENIDYL HYDROCHLORIDE) [Concomitant]
  4. PROMETHAZINE [Concomitant]
  5. LEVOMEPROMAZINE (LEVOMEPROMAZINE) [Concomitant]
  6. HALOPERIDOL [Concomitant]
  7. FLUVOXAMINE MALEATE [Concomitant]
  8. ETIZOLAM (ETIZOLAM) [Concomitant]
  9. LITHIUM   /00033702/ (LITHIUM CARBONATE) [Concomitant]
  10. BROMAZEPAM [Concomitant]
  11. MECOBALAMIN (MECOBALAMIN) [Concomitant]
  12. OXYBUTYNIN   /00538902/ (OXYBUTYNIN HYDROCHLORIDE) [Concomitant]
  13. PROPIVERINE /01241602/ (PORPIVERINE HYDROCHLORIDE) [Concomitant]

REACTIONS (10)
  - ARRHYTHMIA [None]
  - BRAIN OEDEMA [None]
  - CARDIAC FAILURE CONGESTIVE [None]
  - CARDIO-RESPIRATORY ARREST [None]
  - LOSS OF CONSCIOUSNESS [None]
  - LYMPHOCYTIC INFILTRATION [None]
  - MYOCARDITIS [None]
  - OVERDOSE [None]
  - PULMONARY CONGESTION [None]
  - PULMONARY OEDEMA [None]
